FAERS Safety Report 6713592-4 (Version None)
Quarter: 2010Q2

REPORT INFORMATION
  Report Type: 
  Country: None (occurrence: None)
  Receive Date: 20100506
  Receipt Date: 20100426
  Transmission Date: 20101027
  Serious: Yes (Hospitalization)
  Sender: FDA-Public Use
  Company Number: US-JNJFOC-20090905825

PATIENT
  Sex: Male
  Weight: 139.98 kg

DRUGS (30)
  1. USTEKINUMAB [Suspect]
     Indication: PSORIASIS
     Route: 058
  2. USTEKINUMAB [Suspect]
     Route: 058
  3. USTEKINUMAB [Suspect]
     Route: 058
  4. USTEKINUMAB [Suspect]
     Route: 058
  5. USTEKINUMAB [Suspect]
     Route: 058
  6. USTEKINUMAB [Suspect]
     Route: 058
  7. USTEKINUMAB [Suspect]
     Route: 058
  8. USTEKINUMAB [Suspect]
     Route: 058
  9. USTEKINUMAB [Suspect]
     Route: 058
  10. USTEKINUMAB [Suspect]
     Route: 058
  11. USTEKINUMAB [Suspect]
     Route: 058
  12. USTEKINUMAB [Suspect]
     Route: 058
  13. USTEKINUMAB [Suspect]
     Route: 058
  14. USTEKINUMAB [Suspect]
     Route: 058
  15. IBUPROFEN [Concomitant]
     Route: 048
  16. CYCLOBENZAPRINE [Concomitant]
     Route: 048
  17. ATENOLOL [Concomitant]
     Route: 048
  18. TEMAZEPAM [Concomitant]
     Route: 048
  19. FUROSEMIDE [Concomitant]
     Route: 048
  20. METFORMIN [Concomitant]
     Route: 048
  21. TRIAMCINOLONE [Concomitant]
     Route: 061
  22. KLOR-CON [Concomitant]
     Route: 048
  23. FLOMAX [Concomitant]
     Route: 048
  24. NITROGLYCERIN [Concomitant]
     Route: 060
  25. GLUCOTROL XL [Concomitant]
     Route: 048
  26. AMITRIPTLINE HYDROCHLORIDE TAB [Concomitant]
     Route: 048
  27. COUMADIN [Concomitant]
     Route: 048
  28. COZAAR [Concomitant]
     Route: 048
  29. TRIAMTERENE AND HYDROCHLOROTHIAZIDE [Concomitant]
     Route: 048
  30. PROPOXYPHENE HCL AND ACETAMINOPHEN [Concomitant]
     Route: 048

REACTIONS (1)
  - WOUND DEHISCENCE [None]
